FAERS Safety Report 7031212-9 (Version None)
Quarter: 2010Q4

REPORT INFORMATION
  Report Type: 
  Country: None (occurrence: None)
  Receive Date: 20101006
  Receipt Date: 20101001
  Transmission Date: 20110411
  Serious: Yes (Hospitalization)
  Sender: FDA-Public Use
  Company Number: A0835266A

PATIENT
  Age: 49 Year
  Sex: Male

DRUGS (8)
  1. AVANDIA [Suspect]
     Dosage: 4MG AS REQUIRED
     Route: 048
     Dates: start: 20020201, end: 20070101
  2. LISINOPRIL [Concomitant]
  3. LIPITOR [Concomitant]
  4. GLUCOPHAGE [Concomitant]
  5. GEMFIBROZIL [Concomitant]
  6. GLUCOTROL [Concomitant]
  7. LASIX [Concomitant]
  8. ASPIRIN [Concomitant]

REACTIONS (3)
  - CARDIAC FAILURE [None]
  - CARDIAC FAILURE CONGESTIVE [None]
  - SHOCK [None]
